FAERS Safety Report 25523691 (Version 1)
Quarter: 2025Q3

REPORT INFORMATION
  Report Type: Spontaneous
  Country: US (occurrence: None)
  Receive Date: 20250703
  Receipt Date: 20250703
  Transmission Date: 20251020
  Serious: Yes (Hospitalization, Other)
  Sender: FDA-CTU
  Company Number: None

PATIENT
  Age: 67 Year
  Sex: Female

DRUGS (7)
  1. BIKTARVY [Suspect]
     Active Substance: BICTEGRAVIR SODIUM\EMTRICITABINE\TENOFOVIR ALAFENAMIDE FUMARATE
     Indication: HIV infection
     Dosage: FREQUENCY : DAILY;?
     Route: 048
     Dates: start: 20221028
  2. ASPIRIN [Concomitant]
     Active Substance: ASPIRIN
     Dates: start: 20230518
  3. ATORVASTATIN [Concomitant]
     Active Substance: ATORVASTATIN
     Dates: start: 20220726
  4. CLOPIDOGREL [Concomitant]
     Active Substance: CLOPIDOGREL BISULFATE
     Dates: start: 20250531, end: 20250620
  5. MINERALS\VITAMINS [Concomitant]
     Active Substance: MINERALS\VITAMINS
     Dates: start: 20221028
  6. Oyster-D 250mg [Concomitant]
     Dates: start: 20220927
  7. Vitamin D 2000 units [Concomitant]
     Dates: start: 20220927

REACTIONS (4)
  - Rash [None]
  - Cerebrovascular accident [None]
  - Anger [None]
  - Depression [None]
